FAERS Safety Report 23580230 (Version 6)
Quarter: 2025Q4

REPORT INFORMATION
  Report Type: Other
  Country: US (occurrence: US)
  Receive Date: 20240229
  Receipt Date: 20251230
  Transmission Date: 20260118
  Serious: No
  Sender: TRAVERE THERAPEUTICS
  Company Number: US-TRAVERE-2024TVT00169

PATIENT
  Sex: Male

DRUGS (3)
  1. FILSPARI [Suspect]
     Active Substance: SPARSENTAN
     Indication: IgA nephropathy
     Route: 048
     Dates: start: 20240125
  2. FILSPARI [Suspect]
     Active Substance: SPARSENTAN
     Dosage: CUT 400 MG TABLETS IN HALF, TOOK 1 HALF TABLET TWICE A DAY
     Route: 048
  3. FILSPARI [Suspect]
     Active Substance: SPARSENTAN
     Route: 048

REACTIONS (4)
  - Hypotension [Recovered/Resolved]
  - Food poisoning [Recovering/Resolving]
  - Asthenia [Unknown]
  - Off label use [Unknown]
